FAERS Safety Report 7465193-0 (Version None)
Quarter: 2011Q2

REPORT INFORMATION
  Report Type: 
  Country: None (occurrence: None)
  Receive Date: 20110509
  Receipt Date: 20101005
  Transmission Date: 20111010
  Serious: No
  Sender: FDA-Public Use
  Company Number: US-SANOFI-AVENTIS-2010SA061264

PATIENT
  Age: 42 Year
  Sex: Male

DRUGS (2)
  1. LANTUS [Suspect]
     Dosage: DOSE:45 UNIT(S)
     Route: 058
     Dates: start: 20100501
  2. APIDRA [Suspect]
     Dosage: DOSE:5 UNIT(S)
     Route: 058
     Dates: start: 20100501

REACTIONS (4)
  - HYPOGLYCAEMIA [None]
  - DIZZINESS [None]
  - HYPERHIDROSIS [None]
  - WRONG DRUG ADMINISTERED [None]
